FAERS Safety Report 4855830-9 (Version None)
Quarter: 2005Q4

REPORT INFORMATION
  Report Type: 
  Country: None (occurrence: None)
  Receive Date: 20051216
  Receipt Date: 20050705
  Transmission Date: 20060501
  Serious: Yes (Hospitalization, Other)
  Sender: FDA-Public Use
  Company Number: US-MERCK-0507USA00433

PATIENT
  Age: 43 Year
  Sex: Female
  Weight: 82 kg

DRUGS (17)
  1. VIOXX [Suspect]
     Indication: RHEUMATOID ARTHRITIS
     Route: 048
     Dates: start: 20020901, end: 20040901
  2. METHOTREXATE [Concomitant]
     Route: 065
  3. SINGULAIR [Concomitant]
     Route: 065
  4. PROTONIX [Concomitant]
     Route: 065
  5. SYNTHROID [Concomitant]
     Route: 065
  6. EFFEXOR [Concomitant]
     Route: 065
  7. NEURONTIN [Concomitant]
     Route: 065
  8. NIFEDIPINE [Concomitant]
     Route: 065
  9. SPIRONOLACTONE [Concomitant]
     Route: 065
  10. ALLEGRA [Concomitant]
     Route: 065
  11. ZELNORM [Concomitant]
     Route: 065
  12. ERYTHROMYCIN [Concomitant]
     Route: 065
  13. SEROQUEL [Concomitant]
     Route: 065
  14. MIRALAX [Concomitant]
     Route: 065
  15. COUMADIN [Concomitant]
     Route: 065
     Dates: start: 20010101
  16. VIOXX [Concomitant]
     Route: 048
     Dates: start: 20020901, end: 20040901
  17. LEVOXYL [Concomitant]
     Route: 065

REACTIONS (14)
  - ANOREXIA [None]
  - ARTERIAL OCCLUSIVE DISEASE [None]
  - CARDIOVASCULAR DISORDER [None]
  - CHOLECYSTECTOMY [None]
  - CONSTIPATION [None]
  - DYSPNOEA EXERTIONAL [None]
  - FATIGUE [None]
  - GASTROINTESTINAL DISORDER [None]
  - HEADACHE [None]
  - MYOCARDIAL INFARCTION [None]
  - NAUSEA [None]
  - PALPITATIONS [None]
  - PYREXIA [None]
  - ROTATOR CUFF SYNDROME [None]
